FAERS Safety Report 8528502-7 (Version None)
Quarter: 2012Q3

REPORT INFORMATION
  Report Type: 
  Country: None (occurrence: None)
  Receive Date: 20120723
  Receipt Date: 20120713
  Transmission Date: 20120928
  Serious: Yes (Hospitalization, Other)
  Sender: FDA-Public Use
  Company Number: US-009507513-1207USA005295

PATIENT

DRUGS (2)
  1. PROLIXIN (FLUPHENAZINE DECANOATE) [Concomitant]
  2. SAPHRIS [Suspect]
     Dosage: UNK
     Route: 060

REACTIONS (1)
  - CONVULSION [None]
